FAERS Safety Report 22205882 (Version 1)
Quarter: 2023Q2

REPORT INFORMATION
  Report Type: Spontaneous
  Country: DE (occurrence: DE)
  Receive Date: 20230413
  Receipt Date: 20230413
  Transmission Date: 20230722
  Serious: Yes (Other)
  Sender: FDA-Public Use
  Company Number: DE-002147023-NVSC2023DE074407

PATIENT
  Sex: Male
  Weight: 75 kg

DRUGS (3)
  1. ASPIRIN [Suspect]
     Active Substance: ASPIRIN
     Indication: Platelet aggregation abnormal
     Dosage: UNK UNK, ONCE A DAY (QD (1-0-0-0-0) (100))
     Route: 065
     Dates: start: 202202
  2. CLOPIDOGREL [Suspect]
     Active Substance: CLOPIDOGREL BISULFATE
     Indication: Platelet aggregation abnormal
     Dosage: UNK UNK, ONCE A DAY ( QD (1-0-0-0-0))
     Route: 065
     Dates: start: 202202
  3. METAMIZOLE SODIUM [Suspect]
     Active Substance: METAMIZOLE SODIUM
     Indication: Product used for unknown indication
     Dosage: UNK
     Route: 065

REACTIONS (13)
  - Dyslipidaemia [Unknown]
  - Hyperlipidaemia [Unknown]
  - Coronary artery stenosis [Unknown]
  - Spinal cord disorder [Unknown]
  - Hypercholesterolaemia [Unknown]
  - Arteriosclerosis [Unknown]
  - Hepatic cyst [Unknown]
  - Gallbladder polyp [Unknown]
  - Lipoprotein (a) increased [Unknown]
  - Spinal osteoarthritis [Unknown]
  - Lumbar radiculopathy [Unknown]
  - Intervertebral disc protrusion [Unknown]
  - Coronary artery disease [Unknown]
